FAERS Safety Report 4280258-2 (Version None)
Quarter: 2004Q1

REPORT INFORMATION
  Report Type: 
  Country: None (occurrence: None)
  Receive Date: 20040126
  Receipt Date: 20040109
  Transmission Date: 20041129
  Serious: No
  Sender: FDA-Public Use
  Company Number: 204193

PATIENT
  Age: 43 Year
  Sex: Female

DRUGS (3)
  1. HERCEPTIN [Suspect]
     Indication: BREAST CANCER METASTATIC
     Dosage: 8 MG/KG, Q3W, INTRAVENOUS
     Route: 042
     Dates: start: 20031229
  2. TAXOTERE [Concomitant]
  3. DECADRON [Concomitant]

REACTIONS (1)
  - MENTAL DISORDER [None]
